FAERS Safety Report 9171695 (Version 2)
Quarter: 2013Q2

REPORT INFORMATION
  Report Type: Report from Study
  Country: ES (occurrence: ES)
  Receive Date: 20130319
  Receipt Date: 20130418
  Transmission Date: 20140414
  Serious: Yes (Hospitalization)
  Sender: FDA-Public Use
  Company Number: PHHO2013ES003768

PATIENT
  Age: 65 Year
  Sex: Female

DRUGS (7)
  1. IBUPROFEN [Suspect]
     Indication: PAIN
     Dosage: 500 MG, BID
     Dates: start: 20130307
  2. INC424 [Suspect]
     Indication: MYELOFIBROSIS
     Dosage: 20 MG, BID
     Route: 048
     Dates: start: 20130118, end: 20130315
  3. INC424 [Suspect]
     Dosage: UNK
     Dates: start: 20130315
  4. ADIRO [Suspect]
     Indication: ATRIAL FIBRILLATION
     Dosage: 100 MG, QD
     Dates: start: 20120711, end: 20130315
  5. ADIRO [Suspect]
     Dosage: UNK
     Dates: start: 20130315
  6. BISOPROLOL [Concomitant]
     Indication: ATRIAL FIBRILLATION
     Dosage: 2.5 MG, QD
     Dates: start: 20120521
  7. ALOPURINOL [Concomitant]
     Indication: HYPERURICAEMIA
     Dosage: 300 MG, QD
     Dates: start: 19980601

REACTIONS (1)
  - Anaemia [Recovered/Resolved]
